FAERS Safety Report 9492484 (Version 1)
Quarter: 2013Q3

REPORT INFORMATION
  Report Type: Spontaneous
  Country: US (occurrence: US)
  Receive Date: 20130830
  Receipt Date: 20130830
  Transmission Date: 20140515
  Serious: No
  Sender: FDA-Public Use
  Company Number: US-B.I. PHARMACEUTICALS,INC./RIDGEFIELD-2013-BI-26115BP

PATIENT
  Age: 56 Year
  Sex: Male

DRUGS (5)
  1. COMBIVENT [Suspect]
     Dosage: STRENGTH: 20 MCG / 100 MCG; DAILY DOSE: 80 MCG/400 MCG
     Route: 055
     Dates: start: 201307, end: 201308
  2. PROVENTIL [Concomitant]
     Dosage: FORMULATION : INHALATION AEROSOL
     Route: 055
  3. PREDNISONE [Concomitant]
  4. LEVOTHYROXINE [Concomitant]
  5. ALBUTEROL [Concomitant]
     Dosage: FORMULATION: INHALATION AEROSOL
     Route: 055

REACTIONS (1)
  - Drug ineffective [Unknown]
